FAERS Safety Report 6000208-8 (Version None)
Quarter: 2008Q4

REPORT INFORMATION
  Report Type: 
  Country: None (occurrence: None)
  Receive Date: 20081211
  Receipt Date: 20081202
  Transmission Date: 20090506
  Serious: Yes (Death)
  Sender: FDA-Public Use
  Company Number: TCI2008A05768

PATIENT
  Age: 73 Year
  Sex: Male

DRUGS (6)
  1. LANSOPRAZOLE [Suspect]
     Indication: GASTROINTESTINAL HAEMORRHAGE
     Dosage: 15 MG (15 MG, 1 IN 1 D) PER ORAL
     Route: 048
     Dates: start: 20081030, end: 20081105
  2. LASIX [Suspect]
     Indication: RENAL FAILURE CHRONIC
     Dosage: 40 MG (20 MG, 2 IN 1 D) PER ORAL
     Route: 048
     Dates: start: 20080903, end: 20081105
  3. MUCOSTA (REBAMIPIDE) (TABLETS) [Suspect]
     Indication: GASTRIC DISORDER
     Dosage: 300 MG (100 MG, 3 IN 1 D) PER ORAL
     Route: 048
     Dates: start: 20050530, end: 20080814
  4. MUCOSTA (REBAMIPIDE) (TABLETS) [Suspect]
     Indication: PROPHYLAXIS
     Dosage: 300 MG (100 MG, 3 IN 1 D) PER ORAL
     Route: 048
     Dates: start: 20050530, end: 20080814
  5. MUCOSTA (REBAMIPIDE) (TABLETS) [Suspect]
     Indication: GASTRIC DISORDER
     Dosage: 300 MG (100 MG, 3 IN 1 D) PER ORAL
     Route: 048
     Dates: start: 20081030, end: 20081105
  6. MUCOSTA (REBAMIPIDE) (TABLETS) [Suspect]
     Indication: PROPHYLAXIS
     Dosage: 300 MG (100 MG, 3 IN 1 D) PER ORAL
     Route: 048
     Dates: start: 20081030, end: 20081105

REACTIONS (5)
  - ACUTE RESPIRATORY DISTRESS SYNDROME [None]
  - DISSEMINATED INTRAVASCULAR COAGULATION [None]
  - PNEUMONIA [None]
  - RESPIRATORY FAILURE [None]
  - THROMBOCYTOPENIA [None]
